FAERS Safety Report 12807192 (Version 1)
Quarter: 2016Q4

REPORT INFORMATION
  Report Type: Spontaneous
  Country: US (occurrence: US)
  Receive Date: 20161003
  Receipt Date: 20161003
  Transmission Date: 20170207
  Serious: No
  Sender: FDA-Public Use
  Company Number: None

PATIENT
  Sex: Female
  Weight: 67.5 kg

DRUGS (13)
  1. HYOSCYAMINE 0.125MG SUBLINGUAL T [Suspect]
     Active Substance: HYOSCYAMINE
     Indication: DIARRHOEA
     Dosage: ?          QUANTITY:1 TABLET(S);?
     Route: 060
     Dates: start: 20160706, end: 20160831
  2. L-LYSINE [Concomitant]
     Active Substance: LYSINE
  3. HYOSCYAMINE 0.125MG SUBLINGUAL T [Suspect]
     Active Substance: HYOSCYAMINE
     Indication: ABDOMINAL PAIN
     Dosage: ?          QUANTITY:1 TABLET(S);?
     Route: 060
     Dates: start: 20160706, end: 20160831
  4. FLONASE [Concomitant]
     Active Substance: FLUTICASONE PROPIONATE
  5. MULTI-VITAMIN [Concomitant]
     Active Substance: .ALPHA.-TOCOPHEROL ACETATE, DL-\ASCORBIC ACID\CYANOCOBALAMIN\FLUORIDE ION\FOLIC ACID\NIACIN\PYRIDOXINE\RIBOFLAVIN\THIAMINE\VITAMIN A\VITAMIN D
  6. BIOTIN [Concomitant]
     Active Substance: BIOTIN
  7. OMEGA 3 SUPPLEMENTS [Concomitant]
  8. ETHINYL ESTRADIOL [Concomitant]
     Active Substance: ETHINYL ESTRADIOL
  9. PROBIOTICS [Concomitant]
     Active Substance: PROBIOTICS NOS
  10. SIMVASTATIN. [Concomitant]
     Active Substance: SIMVASTATIN
  11. OLOPATADINE [Concomitant]
     Active Substance: OLOPATADINE
  12. DROSPIRENONE [Concomitant]
     Active Substance: DROSPIRENONE
  13. CALCIUM [Concomitant]
     Active Substance: CALCIUM

REACTIONS (1)
  - Product use issue [None]
